FAERS Safety Report 11308425 (Version 1)
Quarter: 2015Q3

REPORT INFORMATION
  Report Type: Spontaneous
  Country: US (occurrence: US)
  Receive Date: 20150724
  Receipt Date: 20150724
  Transmission Date: 20151125
  Serious: No
  Sender: FDA-Public Use
  Company Number: US-PFIZER INC-2015244748

PATIENT
  Sex: Female

DRUGS (3)
  1. CIPRO [Suspect]
     Active Substance: CIPROFLOXACIN HYDROCHLORIDE
     Dosage: UNK (CIPRO IN D5W SOLN)
  2. NIASPAM [Suspect]
     Active Substance: MEBEVERINE HYDROCHLORIDE
     Dosage: UNK
  3. LOPID [Suspect]
     Active Substance: GEMFIBROZIL
     Dosage: UNK

REACTIONS (1)
  - Drug hypersensitivity [Unknown]
